FAERS Safety Report 20774555 (Version 1)
Quarter: 2022Q2

REPORT INFORMATION
  Report Type: Spontaneous
  Country: US (occurrence: US)
  Receive Date: 20220502
  Receipt Date: 20220502
  Transmission Date: 20220721
  Serious: No
  Sender: FDA-Public Use
  Company Number: US-RVL_Pharmaceuticals-USA-POI1255202200096

PATIENT
  Age: 80 Year
  Sex: Female

DRUGS (5)
  1. UPNEEQ [Suspect]
     Active Substance: OXYMETAZOLINE HYDROCHLORIDE
     Indication: Eyelid ptosis
     Dosage: OS AND OCCASIONALLY OU
     Route: 047
     Dates: start: 202203, end: 20220328
  2. UPNEEQ [Suspect]
     Active Substance: OXYMETAZOLINE HYDROCHLORIDE
     Dosage: OS
     Route: 047
     Dates: start: 20220329
  3. RESTASIS [Concomitant]
     Active Substance: CYCLOSPORINE
     Indication: Product used for unknown indication
  4. DORZOLAMIDE WITH TIMOLOL [Concomitant]
     Indication: Product used for unknown indication
  5. LATANOPROST [Concomitant]
     Active Substance: LATANOPROST
     Indication: Product used for unknown indication

REACTIONS (3)
  - Skin disorder [Recovering/Resolving]
  - Feeling hot [Unknown]
  - Off label use [Unknown]

NARRATIVE: CASE EVENT DATE: 20220329
